FAERS Safety Report 13414555 (Version 2)
Quarter: 2018Q1

REPORT INFORMATION
  Report Type: Spontaneous
  Country: US (occurrence: US)
  Receive Date: 20170406
  Receipt Date: 20180118
  Transmission Date: 20180508
  Serious: No
  Sender: FDA-Public Use
  Company Number: US-JNJFOC-20170318966

PATIENT
  Sex: Male

DRUGS (24)
  1. RISPERDAL [Suspect]
     Active Substance: RISPERIDONE
     Indication: COMPULSIVE HANDWASHING
     Dosage: IN VARYING DOSES OF 2 MG AND 3 MG
     Route: 048
     Dates: start: 20090129, end: 20090507
  2. RISPERDAL [Suspect]
     Active Substance: RISPERIDONE
     Indication: SCHIZOPHRENIA
     Route: 048
     Dates: start: 20110922, end: 20110927
  3. RISPERDAL CONSTA [Suspect]
     Active Substance: RISPERIDONE
     Indication: SCHIZOPHRENIA
     Route: 030
  4. RISPERDAL [Suspect]
     Active Substance: RISPERIDONE
     Indication: COMPULSIVE HANDWASHING
     Route: 048
     Dates: start: 20110421
  5. RISPERDAL [Suspect]
     Active Substance: RISPERIDONE
     Indication: COMPULSIVE HANDWASHING
     Route: 048
     Dates: start: 20100401
  6. RISPERDAL [Suspect]
     Active Substance: RISPERIDONE
     Indication: SCHIZOPHRENIA
     Route: 048
     Dates: start: 20080417, end: 20081021
  7. RISPERDAL [Suspect]
     Active Substance: RISPERIDONE
     Indication: SCHIZOPHRENIA
     Route: 048
     Dates: start: 20120112, end: 20120117
  8. RISPERIDONE. [Suspect]
     Active Substance: RISPERIDONE
     Indication: SCHIZOPHRENIA
     Dosage: IN VARYING DOSES 2 MG AND 3 MG.
     Route: 065
     Dates: start: 20090223, end: 20121217
  9. RISPERDAL [Suspect]
     Active Substance: RISPERIDONE
     Indication: SCHIZOPHRENIA
     Route: 048
     Dates: start: 20090814
  10. RISPERDAL [Suspect]
     Active Substance: RISPERIDONE
     Indication: SCHIZOPHRENIA
     Route: 048
     Dates: start: 20110421
  11. RISPERDAL [Suspect]
     Active Substance: RISPERIDONE
     Indication: COMPULSIVE HANDWASHING
     Route: 048
     Dates: start: 20120816, end: 20121217
  12. RISPERDAL [Suspect]
     Active Substance: RISPERIDONE
     Indication: COMPULSIVE HANDWASHING
     Route: 048
     Dates: start: 20110922, end: 20110927
  13. RISPERDAL [Suspect]
     Active Substance: RISPERIDONE
     Indication: SCHIZOPHRENIA
     Route: 048
     Dates: start: 20101120
  14. RISPERDAL [Suspect]
     Active Substance: RISPERIDONE
     Indication: SCHIZOPHRENIA
     Route: 048
     Dates: start: 20100401
  15. RISPERIDONE. [Suspect]
     Active Substance: RISPERIDONE
     Indication: COMPULSIVE HANDWASHING
     Dosage: IN VARYING DOSES 2 MG AND 3 MG.
     Route: 065
     Dates: start: 20090223, end: 20121217
  16. RISPERDAL [Suspect]
     Active Substance: RISPERIDONE
     Indication: COMPULSIVE HANDWASHING
     Route: 048
     Dates: start: 20150423, end: 20150608
  17. RISPERDAL [Suspect]
     Active Substance: RISPERIDONE
     Indication: COMPULSIVE HANDWASHING
     Route: 048
     Dates: start: 20120112, end: 20120117
  18. RISPERDAL [Suspect]
     Active Substance: RISPERIDONE
     Indication: SCHIZOPHRENIA
     Route: 048
     Dates: start: 20150423, end: 20150608
  19. RISPERDAL [Suspect]
     Active Substance: RISPERIDONE
     Indication: SCHIZOPHRENIA
     Route: 048
     Dates: start: 20120816, end: 20121217
  20. RISPERDAL [Suspect]
     Active Substance: RISPERIDONE
     Indication: COMPULSIVE HANDWASHING
     Route: 048
     Dates: start: 20101120
  21. RISPERDAL [Suspect]
     Active Substance: RISPERIDONE
     Indication: COMPULSIVE HANDWASHING
     Route: 048
     Dates: start: 20090814
  22. RISPERIDONE. [Suspect]
     Active Substance: RISPERIDONE
     Indication: PRODUCT USED FOR UNKNOWN INDICATION
     Route: 048
  23. RISPERDAL [Suspect]
     Active Substance: RISPERIDONE
     Indication: COMPULSIVE HANDWASHING
     Route: 048
     Dates: start: 20080417, end: 20081021
  24. RISPERDAL [Suspect]
     Active Substance: RISPERIDONE
     Indication: SCHIZOPHRENIA
     Dosage: IN VARYING DOSES OF 2 MG AND 3 MG
     Route: 048
     Dates: start: 20090129, end: 20090507

REACTIONS (2)
  - Gynaecomastia [Unknown]
  - Emotional disorder [Unknown]
